FAERS Safety Report 7433126-9 (Version None)
Quarter: 2011Q2

REPORT INFORMATION
  Report Type: 
  Country: None (occurrence: None)
  Receive Date: 20110422
  Receipt Date: 20110413
  Transmission Date: 20111010
  Serious: Yes (Hospitalization)
  Sender: FDA-Public Use
  Company Number: US-ASTRAZENECA-2011SE12123

PATIENT
  Age: 51 Year
  Sex: Female

DRUGS (5)
  1. SYMBICORT [Suspect]
     Dosage: 160/4.5 MCG BID
     Route: 055
     Dates: start: 20110101
  2. SPIRIVA [Concomitant]
  3. FLONASE [Concomitant]
  4. SYMBICORT [Suspect]
     Indication: ASTHMA
     Dosage: 160/4.5 MCG BID
     Route: 055
     Dates: start: 20100701
  5. ALBUTEROL [Concomitant]

REACTIONS (3)
  - ASTHMA [None]
  - CATARACT [None]
  - INTRAOCULAR LENS IMPLANT [None]
